FAERS Safety Report 15279993 (Version 3)
Quarter: 2018Q3

REPORT INFORMATION
  Report Type: Spontaneous
  Country: AR (occurrence: AR)
  Receive Date: 20180815
  Receipt Date: 20180912
  Transmission Date: 20181010
  Serious: Yes (Other)
  Sender: FDA-Public Use
  Company Number: AR-BAYER-2018-148596

PATIENT
  Age: 47 Year
  Sex: Female

DRUGS (5)
  1. MIRENA [Suspect]
     Active Substance: LEVONORGESTREL
     Indication: UTERINE LEIOMYOMA
     Dosage: 20 MCG/24HR, CONT
     Route: 015
     Dates: start: 20170919
  2. METFORMIN [Concomitant]
     Active Substance: METFORMIN HYDROCHLORIDE
     Dosage: 850 MG, QD
  3. MIRENA [Suspect]
     Active Substance: LEVONORGESTREL
     Indication: ANAEMIA
  4. DIOSMIN W/HESPERIDIN [Suspect]
     Active Substance: DIOSMIN\HESPERIDIN
     Dosage: 1 G, BID
  5. MIRENA [Suspect]
     Active Substance: LEVONORGESTREL
     Indication: POLYMENORRHOEA

REACTIONS (9)
  - Vaginal haemorrhage [Not Recovered/Not Resolved]
  - Fatigue [Unknown]
  - Uterine leiomyoma [Not Recovered/Not Resolved]
  - Uterine enlargement [Unknown]
  - Off label use of device [None]
  - Metrorrhagia [Recovered/Resolved]
  - Menorrhagia [None]
  - Product use in unapproved indication [Not Recovered/Not Resolved]
  - Amenorrhoea [Recovered/Resolved]

NARRATIVE: CASE EVENT DATE: 20170919
